FAERS Safety Report 15609780 (Version 1)
Quarter: 2018Q4

REPORT INFORMATION
  Report Type: Spontaneous
  Country: US (occurrence: US)
  Receive Date: 20181113
  Receipt Date: 20181113
  Transmission Date: 20190205
  Serious: No
  Sender: FDA-Public Use
  Company Number: US-009507513-1810USA013541

PATIENT
  Sex: Female

DRUGS (1)
  1. FOLLISTIM [Suspect]
     Active Substance: FOLLITROPIN
     Dosage: UNK
     Route: 030

REACTIONS (2)
  - Product dose omission [Unknown]
  - No adverse event [Unknown]

NARRATIVE: CASE EVENT DATE: 20181028
